FAERS Safety Report 5198087-4 (Version None)
Quarter: 2006Q4

REPORT INFORMATION
  Report Type: 
  Country: None (occurrence: None)
  Receive Date: 20061229
  Receipt Date: 20061228
  Transmission Date: 20070319
  Serious: Yes (Hospitalization)
  Sender: FDA-Public Use
  Company Number: 02100-USA-06-0020

PATIENT
  Sex: Female

DRUGS (2)
  1. CILOSTAZOL [Suspect]
     Dosage: 10 MG
  2. ASPIRIN [Concomitant]

REACTIONS (4)
  - DRY MOUTH [None]
  - GAIT DISTURBANCE [None]
  - SKIN DISCOLOURATION [None]
  - SPIDER VEIN [None]
